FAERS Safety Report 14341103 (Version 2)
Quarter: 2018Q1

REPORT INFORMATION
  Report Type: Spontaneous
  Country: JP (occurrence: JP)
  Receive Date: 20180102
  Receipt Date: 20180124
  Transmission Date: 20180509
  Serious: Yes (Other)
  Sender: FDA-Public Use
  Company Number: JP-ROCHE-2046504

PATIENT
  Age: 7 Decade
  Sex: Female

DRUGS (2)
  1. DOXIL [Concomitant]
     Active Substance: DOXORUBICIN HYDROCHLORIDE
     Indication: OVARIAN CANCER
     Route: 041
  2. AVASTIN [Suspect]
     Active Substance: BEVACIZUMAB
     Indication: OVARIAN CANCER
     Route: 041

REACTIONS (4)
  - Fall [Unknown]
  - Pelvic fracture [Unknown]
  - Nasopharyngitis [Unknown]
  - Pyrexia [Recovered/Resolved]
